FAERS Safety Report 20204915 (Version 1)
Quarter: 2021Q4

REPORT INFORMATION
  Report Type: Spontaneous
  Country: FR (occurrence: FR)
  Receive Date: 20211220
  Receipt Date: 20211220
  Transmission Date: 20220303
  Serious: Yes (Hospitalization, Congenital Anomaly, Other)
  Sender: FDA-Public Use
  Company Number: FR-ABBVIE-21K-056-4189603-00

PATIENT
  Sex: Male
  Weight: 3.54 kg

DRUGS (3)
  1. VALPROATE SODIUM [Suspect]
     Active Substance: VALPROATE SODIUM
     Indication: Maternal exposure timing unspecified
     Route: 064
  2. LAMOTRIGINE [Suspect]
     Active Substance: LAMOTRIGINE
     Indication: Maternal exposure timing unspecified
     Route: 064
  3. FOLIC ACID [Concomitant]
     Active Substance: FOLIC ACID
     Indication: Maternal exposure timing unspecified

REACTIONS (38)
  - Ear infection [Unknown]
  - Bronchiolitis [Unknown]
  - Speech disorder developmental [Unknown]
  - Dysmorphism [Unknown]
  - Autism spectrum disorder [Unknown]
  - Dysgraphia [Unknown]
  - Anodontia [Unknown]
  - Psychomotor retardation [Unknown]
  - Astigmatism [Unknown]
  - Strabismus [Unknown]
  - Hypermetropia [Unknown]
  - Agitation [Unknown]
  - Anger [Unknown]
  - Anxiety [Unknown]
  - Psychomotor skills impaired [Unknown]
  - Haemangioma of bone [Unknown]
  - Communication disorder [Unknown]
  - Bronchial disorder [Unknown]
  - Behaviour disorder [Unknown]
  - Obsessive thoughts [Unknown]
  - Emotional disorder [Unknown]
  - Developmental delay [Unknown]
  - Memory impairment [Unknown]
  - Unevaluable event [Unknown]
  - Loss of personal independence in daily activities [Unknown]
  - Disorientation [Unknown]
  - Personality disorder [Unknown]
  - IIIrd nerve disorder [Unknown]
  - Developmental coordination disorder [Unknown]
  - Body dysmorphic disorder [Unknown]
  - Motor developmental delay [Unknown]
  - Dyslexia [Unknown]
  - Coordination abnormal [Unknown]
  - Dysgraphia [Unknown]
  - Reading disorder [Unknown]
  - Impaired work ability [Unknown]
  - Emotional disorder [Unknown]
  - Foetal exposure during pregnancy [Unknown]

NARRATIVE: CASE EVENT DATE: 20080614
